FAERS Safety Report 19659922 (Version 3)
Quarter: 2021Q4

REPORT INFORMATION
  Report Type: Spontaneous
  Country: US (occurrence: None)
  Receive Date: 20210805
  Receipt Date: 20211123
  Transmission Date: 20220304
  Serious: Yes (Other)
  Sender: FDA-Public Use
  Company Number: US-FARMAPROD-202107-1099

PATIENT
  Sex: Female

DRUGS (27)
  1. OXERVATE [Suspect]
     Active Substance: CENEGERMIN-BKBJ
     Indication: Neurotrophic keratopathy
     Route: 047
     Dates: start: 20210621, end: 20210817
  2. OXERVATE [Suspect]
     Active Substance: CENEGERMIN-BKBJ
     Route: 047
     Dates: start: 20210929
  3. REFRESH TEARS [Concomitant]
     Active Substance: CARBOXYMETHYLCELLULOSE SODIUM
  4. IBUPROFEN [Concomitant]
     Active Substance: IBUPROFEN
  5. CULTURELLE PROBIOTIC/MULTIVITAMINE [Concomitant]
  6. IRON [Concomitant]
     Active Substance: IRON
     Dosage: 159(45) EXTENDED RELEASE TABLET
  7. CLARITIN-D 12 HOUR [Concomitant]
     Active Substance: LORATADINE\PSEUDOEPHEDRINE SULFATE
  8. BENADRYL [Concomitant]
     Active Substance: DIPHENHYDRAMINE HYDROCHLORIDE
  9. ACETAMINOPHEN [Concomitant]
     Active Substance: ACETAMINOPHEN
  10. ONDANSETRON HCL [Concomitant]
     Active Substance: ONDANSETRON HYDROCHLORIDE
  11. SUMATRIPTAN SUCCINATE [Concomitant]
     Active Substance: SUMATRIPTAN SUCCINATE
  12. PREDNISOLONE/NEPAFENAC [Concomitant]
  13. HYDROXYZINE HYDROCHLORIDE [Concomitant]
     Active Substance: HYDROXYZINE HYDROCHLORIDE
  14. AMOXICILLIN [Concomitant]
     Active Substance: AMOXICILLIN
  15. ZOLPIDEM TARTRATE [Concomitant]
     Active Substance: ZOLPIDEM TARTRATE
  16. LEVETIRACETAM [Concomitant]
     Active Substance: LEVETIRACETAM
  17. ENBREL [Concomitant]
     Active Substance: ETANERCEPT
     Dosage: 500 MG/ML SYRINGE
  18. PROPRANOLOL HYDROCHLORIDE [Concomitant]
     Active Substance: PROPRANOLOL HYDROCHLORIDE
  19. PILOCARPINE HYDROCHLORIDE [Concomitant]
     Active Substance: PILOCARPINE HYDROCHLORIDE
  20. METHOTREXATE [Concomitant]
     Active Substance: METHOTREXATE
  21. NALTREXONE HYDROCHLORIDE [Concomitant]
     Active Substance: NALTREXONE HYDROCHLORIDE
  22. HYDROXYCHLOROQUINE SULFATE [Concomitant]
     Active Substance: HYDROXYCHLOROQUINE SULFATE
  23. GABAPENTIN [Concomitant]
     Active Substance: GABAPENTIN
  24. DULOXETINE HYDROCHLORIDE [Concomitant]
     Active Substance: DULOXETINE HYDROCHLORIDE
     Dosage: 20 MG DELAYED RELEASE CAPSULE
  25. BISACODYL [Concomitant]
     Active Substance: BISACODYL
     Dosage: 5 MG EXTENDED RELEASE TABLET
  26. BACLOFEN [Concomitant]
     Active Substance: BACLOFEN
  27. ARMOUR THYROID [Concomitant]
     Active Substance: THYROID, PORCINE

REACTIONS (11)
  - Hip fracture [Unknown]
  - Eye pain [Recovered/Resolved]
  - Eye discharge [Unknown]
  - Swelling of eyelid [Recovered/Resolved]
  - Concussion [Unknown]
  - Eye pruritus [Unknown]
  - Ocular discomfort [Unknown]
  - Product administration error [Unknown]
  - Eye infection [Unknown]
  - Illness [Unknown]
  - Product dose omission issue [Unknown]
